FAERS Safety Report 9296992 (Version 1)
Quarter: 2013Q2

REPORT INFORMATION
  Report Type: Spontaneous
  Country: GB (occurrence: GB)
  Receive Date: 20130518
  Receipt Date: 20130518
  Transmission Date: 20140414
  Serious: Yes (Death)
  Sender: FDA-Public Use
  Company Number: GB-BAXTER-2013BAX018565

PATIENT
  Sex: Male
  Weight: 1.81 kg

DRUGS (5)
  1. AERRANE (ISOFLURANE) [Suspect]
     Indication: FOETAL EXPOSURE TIMING UNSPECIFIED
     Route: 064
  2. FENTANYL [Suspect]
     Indication: FOETAL EXPOSURE TIMING UNSPECIFIED
     Dosage: 500 UG
     Route: 064
  3. ETOMIDATE [Suspect]
     Indication: FOETAL EXPOSURE TIMING UNSPECIFIED
     Route: 064
  4. SUXAMETHONIUM [Suspect]
     Indication: FOETAL EXPOSURE TIMING UNSPECIFIED
     Route: 064
  5. VECURONIUM [Suspect]
     Indication: FOETAL EXPOSURE TIMING UNSPECIFIED
     Route: 064

REACTIONS (3)
  - Brain injury [Fatal]
  - Premature baby [Not Recovered/Not Resolved]
  - Foetal exposure during pregnancy [Recovered/Resolved]
